FAERS Safety Report 9035952 (Version 1)
Quarter: 2013Q1

REPORT INFORMATION
  Report Type: Report from Study
  Country: US (occurrence: US)
  Receive Date: 20130129
  Receipt Date: 20130129
  Transmission Date: 20140127
  Serious: No
  Sender: FDA-Public Use
  Company Number: US-ABBOTT-12P-163-0915315-00

PATIENT
  Age: 62 Year
  Sex: Male

DRUGS (4)
  1. HUMIRA 40 MG/0.8 ML PEN [Suspect]
     Indication: ANKYLOSING SPONDYLITIS
     Dates: start: 20120313
  2. VOLTAREN [Concomitant]
     Indication: PAIN
     Dosage: DAILY
  3. LOVASTATIN [Concomitant]
     Indication: BLOOD CHOLESTEROL INCREASED
     Dosage: 20 MG DAILY
  4. TERAZOSIN [Concomitant]
     Indication: PROSTATOMEGALY
     Dosage: 10 MG DAILY

REACTIONS (1)
  - Injection site pain [Recovered/Resolved]
